FAERS Safety Report 4457534-3 (Version None)
Quarter: 2004Q3

REPORT INFORMATION
  Report Type: 
  Country: None (occurrence: None)
  Receive Date: 20040921
  Receipt Date: 20040907
  Transmission Date: 20050211
  Serious: Yes (Hospitalization)
  Sender: FDA-Public Use
  Company Number: A0524836A

PATIENT
  Age: 47 Year
  Sex: Male

DRUGS (2)
  1. COMMIT [Suspect]
     Indication: SMOKING CESSATION THERAPY
     Dosage: 4 MG/ TRANSBUCCAL
     Route: 002
     Dates: start: 20030101, end: 20030101
  2. COMMIT [Suspect]
     Indication: SMOKING CESSATION THERAPY
     Dosage: 4 MG/ TRANSBUCCAL
     Route: 002
     Dates: start: 20040801, end: 20040905

REACTIONS (5)
  - BLOOD CHOLESTEROL INCREASED [None]
  - DRUG INEFFECTIVE [None]
  - GRAND MAL CONVULSION [None]
  - MYOCARDIAL INFARCTION [None]
  - PHARMACEUTICAL PRODUCT COMPLAINT [None]
